FAERS Safety Report 9369407 (Version 3)
Quarter: 2014Q2

REPORT INFORMATION
  Report Type: Spontaneous
  Country: FR (occurrence: FR)
  Receive Date: 20130626
  Receipt Date: 20140612
  Transmission Date: 20141212
  Serious: Yes (Hospitalization)
  Sender: FDA-Public Use
  Company Number: FR-MERCK-1306FRA008728

PATIENT
  Age: 65 Year
  Sex: Male
  Weight: 99 kg

DRUGS (8)
  1. JANUVIA [Suspect]
     Indication: TYPE 2 DIABETES MELLITUS
     Dosage: 100 MG, QD
     Route: 048
     Dates: start: 20100219, end: 20130502
  2. METFORMIN [Concomitant]
     Indication: PRODUCT USED FOR UNKNOWN INDICATION
     Route: 048
  3. DAONIL [Concomitant]
     Indication: PRODUCT USED FOR UNKNOWN INDICATION
     Route: 048
  4. GLUCOR [Concomitant]
  5. HYTACAND [Concomitant]
  6. TAHOR [Concomitant]
  7. IPERTEN [Concomitant]
  8. DERMOVAL (BETAMETHASONE VALERATE) [Concomitant]

REACTIONS (1)
  - Pemphigoid [Recovered/Resolved with Sequelae]
